FAERS Safety Report 7703262-8 (Version None)
Quarter: 2011Q3

REPORT INFORMATION
  Report Type: 
  Country: None (occurrence: None)
  Receive Date: 20110823
  Receipt Date: 20110819
  Transmission Date: 20111222
  Serious: Yes (Death)
  Sender: FDA-Public Use
  Company Number: MX-SANOFI-AVENTIS-2011SA053250

PATIENT
  Age: 64 Year
  Sex: Female

DRUGS (3)
  1. ENOXAPARIN SODIUM [Suspect]
     Indication: THROMBOSIS PROPHYLAXIS
     Route: 058
     Dates: start: 20110514, end: 20110722
  2. CANDESARTAN CILEXETIL [Concomitant]
     Route: 048
     Dates: end: 20110722
  3. METFORMIN (GLIBENCLAMIDE/METFORMIN) [Concomitant]
     Indication: TYPE 2 DIABETES MELLITUS
     Route: 048
     Dates: end: 20110722

REACTIONS (1)
  - BREAST CANCER METASTATIC [None]
